FAERS Safety Report 9520120 (Version 2)
Quarter: 2013Q3

REPORT INFORMATION
  Report Type: Spontaneous
  Country: JP (occurrence: JP)
  Receive Date: 20130912
  Receipt Date: 20130925
  Transmission Date: 20140515
  Serious: No
  Sender: FDA-Public Use
  Company Number: JP-PFIZER INC-2013259847

PATIENT
  Age: 64 Year
  Sex: Female

DRUGS (1)
  1. ZITHROMAC SR [Suspect]
     Indication: COUGH
     Dosage: UNK
     Route: 048
     Dates: start: 201307

REACTIONS (2)
  - Nasal congestion [Unknown]
  - Hyposmia [Recovered/Resolved]
